FAERS Safety Report 17409487 (Version 3)
Quarter: 2021Q1

REPORT INFORMATION
  Report Type: Spontaneous
  Country: US (occurrence: US)
  Receive Date: 20200212
  Receipt Date: 20210120
  Transmission Date: 20210419
  Serious: Yes (Hospitalization, Other)
  Sender: FDA-Public Use
  Company Number: US-PFIZER INC-2020060505

PATIENT
  Age: 70 Year
  Sex: Female
  Weight: 63.49 kg

DRUGS (8)
  1. STADOL [Suspect]
     Active Substance: BUTORPHANOL TARTRATE
     Indication: PAIN MANAGEMENT
     Dosage: UNK
  2. CARVEDILOL. [Concomitant]
     Active Substance: CARVEDILOL
     Indication: BLOOD PRESSURE ABNORMAL
     Dosage: 6.2 MG, 2X/DAY
  3. DIAZEPAM. [Concomitant]
     Active Substance: DIAZEPAM
     Indication: MUSCLE SPASMS
     Dosage: 10 MG, 4X/DAY
  4. PANTOPRAZOLE [Concomitant]
     Active Substance: PANTOPRAZOLE
     Dosage: 40 MG, 2X/DAY
  5. NUBAIN [Suspect]
     Active Substance: NALBUPHINE HYDROCHLORIDE
     Indication: PAIN MANAGEMENT
     Dosage: UNK
  6. TRAMADOL. [Suspect]
     Active Substance: TRAMADOL
     Dosage: UNK
  7. METHOCARBAMOL. [Concomitant]
     Active Substance: METHOCARBAMOL
     Indication: MUSCLE SPASMS
     Dosage: 750 MG, EVERY 4 HRS
  8. NALBUPHINE HYDROCHLORIDE. [Suspect]
     Active Substance: NALBUPHINE HYDROCHLORIDE
     Indication: PAIN MANAGEMENT
     Dosage: 1 ML, AS NEEDED
     Route: 030
     Dates: start: 1990

REACTIONS (3)
  - Body height decreased [Unknown]
  - Hallucination [Unknown]
  - Sensory disturbance [Unknown]
